FAERS Safety Report 5088453-X (Version None)
Quarter: 2006Q3

REPORT INFORMATION
  Report Type: 
  Country: None (occurrence: None)
  Receive Date: 20060822
  Receipt Date: 20060809
  Transmission Date: 20061208
  Serious: Yes (Other)
  Sender: FDA-Public Use
  Company Number: 2006097798

PATIENT

DRUGS (1)
  1. CLINDAMYCIN [Suspect]
     Indication: DRUG USE FOR UNKNOWN INDICATION
     Dosage: INTRAVENOUS
     Route: 042

REACTIONS (4)
  - ADMINISTRATION SITE REACTION [None]
  - INCORRECT DOSE ADMINISTERED [None]
  - PARAESTHESIA [None]
  - WRONG TECHNIQUE IN DRUG USAGE PROCESS [None]
